FAERS Safety Report 24281788 (Version 1)
Quarter: 2024Q3

REPORT INFORMATION
  Report Type: Spontaneous
  Country: US (occurrence: None)
  Receive Date: 20240904
  Receipt Date: 20240904
  Transmission Date: 20241017
  Serious: Yes (unspecified)
  Sender: Public
  Company Number: None

PATIENT
  Sex: 0

DRUGS (1)
  1. IRON DEXTRAN [Suspect]
     Active Substance: IRON DEXTRAN

REACTIONS (4)
  - Ear discomfort [None]
  - Nasal discomfort [None]
  - Back pain [None]
  - Paraesthesia [None]

NARRATIVE: CASE EVENT DATE: 20240902
